FAERS Safety Report 10282633 (Version 1)
Quarter: 2014Q3

REPORT INFORMATION
  Report Type: Spontaneous
  Country: US (occurrence: US)
  Receive Date: 20140707
  Receipt Date: 20140707
  Transmission Date: 20150326
  Serious: No
  Sender: FDA-Public Use
  Company Number: US-009507513-1407USA000399

PATIENT
  Sex: Male

DRUGS (2)
  1. TEMODAR [Suspect]
     Active Substance: TEMOZOLOMIDE
     Indication: SMALL INTESTINE CARCINOMA
     Dosage: 100 MG, BID (2 CAPSULES TWICE A DAY, ON DAYS 10 THROUGH 14)
     Route: 048
     Dates: start: 201404
  2. XELODA [Concomitant]
     Active Substance: CAPECITABINE

REACTIONS (3)
  - Medication error [Unknown]
  - Wrong technique in drug usage process [Unknown]
  - Product taste abnormal [Unknown]

NARRATIVE: CASE EVENT DATE: 2014
